FAERS Safety Report 25462840 (Version 1)
Quarter: 2025Q2

REPORT INFORMATION
  Report Type: Spontaneous
  Country: US (occurrence: US)
  Receive Date: 20250620
  Receipt Date: 20250620
  Transmission Date: 20250716
  Serious: Yes (Other)
  Sender: ELI LILLY AND COMPANY
  Company Number: US-ELI_LILLY_AND_COMPANY-US202506015814

PATIENT
  Age: 54 Year

DRUGS (1)
  1. HUMALOG [Suspect]
     Active Substance: INSULIN LISPRO
     Indication: Product used for unknown indication
     Route: 065

REACTIONS (9)
  - Myocardial infarction [Unknown]
  - Cerebrovascular accident [Unknown]
  - Coronary artery occlusion [Unknown]
  - Tendon discomfort [Unknown]
  - Brain fog [Unknown]
  - Hand fracture [Unknown]
  - Fall [Unknown]
  - Urinary incontinence [Unknown]
  - Arthralgia [Unknown]

NARRATIVE: CASE EVENT DATE: 20040101
